FAERS Safety Report 16418739 (Version 2)
Quarter: 2019Q3

REPORT INFORMATION
  Report Type: Report from Study
  Country: None (occurrence: US)
  Receive Date: 20190612
  Receipt Date: 20190704
  Transmission Date: 20191004
  Serious: Yes (Death, Other)
  Sender: FDA-Public Use
  Company Number: US-ABBVIE-19S-163-2816837-00

PATIENT
  Age: 61 Year
  Sex: Male

DRUGS (1)
  1. CREON [Suspect]
     Active Substance: PANCRELIPASE AMYLASE\PANCRELIPASE LIPASE\PANCRELIPASE PROTEASE
     Indication: PANCREATIC FAILURE
     Dosage: TWO CAPSULES WITH MEALS AND ONE CAPSULE WITH SNACKS
     Route: 048
     Dates: start: 20180208

REACTIONS (2)
  - Death [Fatal]
  - Pancreatic failure [Unknown]

NARRATIVE: CASE EVENT DATE: 20190408
